FAERS Safety Report 8117663-X (Version None)
Quarter: 2012Q1

REPORT INFORMATION
  Report Type: 
  Country: None (occurrence: None)
  Receive Date: 20120203
  Receipt Date: 20120203
  Transmission Date: 20120608
  Serious: Yes (Other)
  Sender: FDA-Public Use
  Company Number: None

PATIENT
  Sex: Male

DRUGS (1)
  1. CLOZARIL [Suspect]
     Indication: PSYCHOTIC DISORDER
     Dosage: 50 MG BID PO
     Route: 048
     Dates: start: 20111102

REACTIONS (4)
  - ORTHOSTATIC HYPOTENSION [None]
  - ANKLE FRACTURE [None]
  - FALL [None]
  - HYPERTENSION [None]
